FAERS Safety Report 4838143-0 (Version None)
Quarter: 2005Q4

REPORT INFORMATION
  Report Type: 
  Country: None (occurrence: None)
  Receive Date: 20051123
  Receipt Date: 20051123
  Transmission Date: 20060501
  Serious: Yes (Life-Threatening)
  Sender: FDA-Public Use
  Company Number: None

PATIENT
  Sex: Male

DRUGS (10)
  1. COUMADIN [Suspect]
     Indication: ATRIAL FIBRILLATION
     Dosage: PO DAILY
     Route: 048
     Dates: start: 20050629, end: 20050701
  2. METFORMIN [Concomitant]
  3. ATENOLOL [Concomitant]
  4. QUINAPRIL [Concomitant]
  5. HYDROCHLOROTHIAZIDE [Concomitant]
  6. NORVASC [Concomitant]
  7. AMOLIDIZE [Concomitant]
  8. ASPIRIN [Concomitant]
  9. COLACE [Concomitant]
  10. LESCOL [Concomitant]

REACTIONS (2)
  - FAECES DISCOLOURED [None]
  - INTERNATIONAL NORMALISED RATIO INCREASED [None]
